FAERS Safety Report 4588977-5 (Version None)
Quarter: 2005Q1

REPORT INFORMATION
  Report Type: 
  Country: None (occurrence: None)
  Receive Date: 20050216
  Receipt Date: 20050131
  Transmission Date: 20050727
  Serious: No
  Sender: FDA-Public Use
  Company Number: USA050289564

PATIENT
  Age: 53 Year
  Sex: Female

DRUGS (3)
  1. STRATTERA [Suspect]
     Indication: ATTENTION DEFICIT/HYPERACTIVITY DISORDER
     Dosage: 40 MG/1 DAY
  2. RITALIN LA [Concomitant]
  3. METFORMIN HCL [Concomitant]

REACTIONS (3)
  - DIABETES MELLITUS [None]
  - WEIGHT INCREASED [None]
  - WEIGHT LOSS POOR [None]
